FAERS Safety Report 6031621-0 (Version None)
Quarter: 2009Q1

REPORT INFORMATION
  Report Type: 
  Country: None (occurrence: None)
  Receive Date: 20090108
  Receipt Date: 20081230
  Transmission Date: 20090719
  Serious: Yes (Hospitalization)
  Sender: FDA-Public Use
  Company Number: CA-ELI_LILLY_AND_COMPANY-CA200812006174

PATIENT
  Age: 59 Year
  Sex: Female

DRUGS (7)
  1. FORTEO [Suspect]
     Indication: OSTEOPOROSIS
     Dosage: 20 UG, DAILY (1/D)
     Dates: start: 20080517
  2. MICARDIS [Concomitant]
     Dosage: 80 MG, UNK
  3. NORVASC [Concomitant]
     Dosage: 5 MG, UNK
  4. PAXIL [Concomitant]
     Dosage: 30 MG, UNK
  5. PANTOLOC                           /01263201/ [Concomitant]
     Dosage: 40 MG, UNK
  6. CALCIUM [Concomitant]
     Dosage: 500 MG, UNK
  7. VITAMIN D [Concomitant]
     Dosage: 400 U, UNK

REACTIONS (2)
  - HEADACHE [None]
  - TRISMUS [None]
